FAERS Safety Report 6058341-0 (Version None)
Quarter: 2009Q1

REPORT INFORMATION
  Report Type: 
  Country: None (occurrence: None)
  Receive Date: 20090130
  Receipt Date: 20090126
  Transmission Date: 20090719
  Serious: Yes (Death)
  Sender: FDA-Public Use
  Company Number: GB-BRISTOL-MYERS SQUIBB COMPANY-14147144

PATIENT
  Age: 38 Year
  Sex: Female

DRUGS (7)
  1. ABILIFY [Suspect]
  2. CITALOPRAM [Concomitant]
  3. DICLOFENAC [Concomitant]
  4. DOXAZOSIN MESYLATE [Concomitant]
  5. RAMIPRIL [Concomitant]
  6. SERTRALINE [Concomitant]
  7. ACETAMINOPHEN W/ CODEINE [Concomitant]

REACTIONS (1)
  - SUDDEN DEATH [None]
